FAERS Safety Report 19689739 (Version 2)
Quarter: 2021Q3

REPORT INFORMATION
  Report Type: Spontaneous
  Country: FR (occurrence: FR)
  Receive Date: 20210811
  Receipt Date: 20210817
  Transmission Date: 20211014
  Serious: Yes (Hospitalization, Other)
  Sender: FDA-Public Use
  Company Number: FR-BAXTER-2021BAX024435

PATIENT
  Sex: Male

DRUGS (34)
  1. EAU POUR PREPARATIONS INJECTABLES VIAFLO, SOLVANT POUR PREPARATION PAR [Suspect]
     Active Substance: WATER
     Indication: PARENTERAL NUTRITION
     Route: 065
     Dates: start: 20210729, end: 20210729
  2. VINTENE, SOLUTION INJECTABLE POUR PERFUSION [Suspect]
     Active Substance: AMINO ACIDS, SOURCE UNSPECIFIED
     Dosage: DOSE REINTRODUCED
     Route: 065
  3. NACL [Suspect]
     Active Substance: SODIUM CHLORIDE
     Dosage: DOSE REINTRODUCED
     Route: 065
  4. SELENIUM [Suspect]
     Active Substance: SELENIUM
     Indication: PARENTERAL NUTRITION
     Route: 065
     Dates: start: 20210729, end: 20210729
  5. L?CARNITINE [Suspect]
     Active Substance: LEVOCARNITINE
     Dosage: DOSE REINTRODUCED
     Route: 065
  6. VITALIPID INFANT [Suspect]
     Active Substance: ERGOCALCIFEROL\PHYTONADIONE\TOCOPHEROL\VITAMIN A PALMITATE
     Dosage: DOSE REINTRODUCED
     Route: 065
  7. SMOFKABIVEN [Suspect]
     Active Substance: AMINO ACIDS\DEXTROSE\ELECTROLYTES NOS\SOYBEAN OIL
     Dosage: DOSE REINTRODUCED
     Route: 065
  8. SODIUM LACTATE. [Suspect]
     Active Substance: SODIUM LACTATE
     Indication: PARENTERAL NUTRITION
     Route: 065
     Dates: start: 20210729, end: 20210729
  9. FAMOTIDINE. [Suspect]
     Active Substance: FAMOTIDINE
     Indication: PARENTERAL NUTRITION
     Route: 065
     Dates: start: 20210729, end: 20210729
  10. VITALIPID INFANT [Suspect]
     Active Substance: ERGOCALCIFEROL\PHYTONADIONE\TOCOPHEROL\VITAMIN A PALMITATE
     Indication: PARENTERAL NUTRITION
     Route: 065
     Dates: start: 20210729, end: 20210729
  11. KCL [Suspect]
     Active Substance: POTASSIUM CHLORIDE
     Indication: PARENTERAL NUTRITION
     Route: 065
     Dates: start: 20210729, end: 20210729
  12. MAGNESIUM CHLORIDE. [Suspect]
     Active Substance: MAGNESIUM CHLORIDE
     Indication: PARENTERAL NUTRITION
     Route: 065
     Dates: start: 20210729, end: 20210729
  13. SODIUM LACTATE. [Suspect]
     Active Substance: SODIUM LACTATE
     Dosage: DOSE REINTRODUCED
     Route: 065
  14. SOLUVIT [Suspect]
     Active Substance: VITAMINS
     Dosage: DOSE REINTRODUCED
     Route: 065
  15. L?CARNITINE [Suspect]
     Active Substance: LEVOCARNITINE
     Indication: PARENTERAL NUTRITION
     Route: 065
     Dates: start: 20210729, end: 20210729
  16. FAMOTIDINE. [Suspect]
     Active Substance: FAMOTIDINE
     Dosage: DOSE REINTRODUCED
     Route: 065
  17. NUTRYELT [Suspect]
     Active Substance: IRON\MINERALS\POTASSIUM IOD\SODIUM FLUORIDE\SODIUM MOLYBDATE\SODIUM SELENITE\ZINC
     Indication: PARENTERAL NUTRITION
     Route: 065
     Dates: start: 20210729, end: 20210729
  18. EAU POUR PREPARATIONS INJECTABLES VIAFLO, SOLVANT POUR PREPARATION PAR [Suspect]
     Active Substance: WATER
     Dosage: DOSE REINTRODUCED
     Route: 065
  19. GLUCOSE [Suspect]
     Active Substance: DEXTROSE
     Dosage: DOSE REINTRODUCED
     Route: 065
  20. CALCIUM GLUCONATE. [Suspect]
     Active Substance: CALCIUM GLUCONATE
     Indication: PARENTERAL NUTRITION
     Route: 065
     Dates: start: 20210729, end: 20210729
  21. CALCIUM GLUCONATE. [Suspect]
     Active Substance: CALCIUM GLUCONATE
     Dosage: DOSE REINTRODUCED
     Route: 065
  22. NACL [Suspect]
     Active Substance: SODIUM CHLORIDE
     Indication: PARENTERAL NUTRITION
     Route: 065
     Dates: start: 20210729, end: 20210729
  23. PHOCYTAN [Suspect]
     Active Substance: .ALPHA.-GLUCOSE-1-PHOSPHATE
     Dosage: DOSE REINTRODUCED
     Route: 065
  24. NUTRYELT [Suspect]
     Active Substance: IRON\MINERALS\POTASSIUM IOD\SODIUM FLUORIDE\SODIUM MOLYBDATE\SODIUM SELENITE\ZINC
     Dosage: DOSE REINTRODUCED
     Route: 065
  25. SELENIUM [Suspect]
     Active Substance: SELENIUM
     Dosage: DOSE REINTRODUCED
     Route: 065
  26. SMOFKABIVEN [Suspect]
     Active Substance: AMINO ACIDS\DEXTROSE\ELECTROLYTES NOS\SOYBEAN OIL
     Indication: PARENTERAL NUTRITION
     Route: 065
     Dates: start: 20210729, end: 20210729
  27. PHOCYTAN [Suspect]
     Active Substance: .ALPHA.-GLUCOSE-1-PHOSPHATE
     Indication: PARENTERAL NUTRITION
     Route: 065
     Dates: start: 20210729, end: 20210729
  28. VINTENE, SOLUTION INJECTABLE POUR PERFUSION [Suspect]
     Active Substance: AMINO ACIDS, SOURCE UNSPECIFIED
     Indication: PARENTERAL NUTRITION
     Route: 065
     Dates: start: 20210729, end: 20210729
  29. GLUCOSE [Suspect]
     Active Substance: DEXTROSE
     Indication: PARENTERAL NUTRITION
     Route: 065
     Dates: start: 20210729, end: 20210729
  30. KCL [Suspect]
     Active Substance: POTASSIUM CHLORIDE
     Dosage: DOSE REINTRODUCED
     Route: 065
  31. MAGNESIUM CHLORIDE. [Suspect]
     Active Substance: MAGNESIUM CHLORIDE
     Dosage: DOSE REINTRODUCED
     Route: 065
  32. SOLUVIT [Suspect]
     Active Substance: VITAMINS
     Indication: PARENTERAL NUTRITION
     Route: 065
     Dates: start: 20210729, end: 20210729
  33. VIT E EPHYNAL [Suspect]
     Active Substance: .ALPHA.-TOCOPHEROL ACETATE
     Indication: PARENTERAL NUTRITION
     Route: 065
     Dates: start: 20210729, end: 20210729
  34. VIT E EPHYNAL [Suspect]
     Active Substance: .ALPHA.-TOCOPHEROL ACETATE
     Dosage: DOSE REINTRODUCED
     Route: 065

REACTIONS (1)
  - Anaphylactic reaction [Recovered/Resolved]

NARRATIVE: CASE EVENT DATE: 20210729
